FAERS Safety Report 7225767-9 (Version None)
Quarter: 2011Q1

REPORT INFORMATION
  Report Type: 
  Country: None (occurrence: None)
  Receive Date: 20110110
  Receipt Date: 20110110
  Transmission Date: 20110831
  Serious: No
  Sender: FDA-Public Use
  Company Number: None

PATIENT
  Age: 56 Year
  Sex: Female
  Weight: 74.8435 kg

DRUGS (4)
  1. ONGLYZA [Suspect]
     Indication: PRURITUS
     Dosage: 1 TABLET ONCE DAILY PO
     Route: 048
  2. ONGLYZA [Suspect]
     Indication: SKIN BURNING SENSATION
     Dosage: 1 TABLET ONCE DAILY PO
     Route: 048
  3. JANUVIA [Suspect]
     Indication: PRURITUS
     Dosage: 1 TABLET ONCE DAILY PO
     Route: 048
  4. JANUVIA [Suspect]
     Indication: SKIN BURNING SENSATION
     Dosage: 1 TABLET ONCE DAILY PO
     Route: 048

REACTIONS (1)
  - PRURITUS GENERALISED [None]
